FAERS Safety Report 5254125-1 (Version None)
Quarter: 2007Q1

REPORT INFORMATION
  Report Type: 
  Country: None (occurrence: None)
  Receive Date: 20070302
  Receipt Date: 20070227
  Transmission Date: 20070707
  Serious: Yes (Hospitalization)
  Sender: FDA-Public Use
  Company Number: DE-BAYER-200710193BVD

PATIENT
  Age: 75 Year
  Sex: Male
  Weight: 75 kg

DRUGS (13)
  1. SORAFENIB [Suspect]
     Indication: RENAL CELL CARCINOMA STAGE UNSPECIFIED
     Dosage: TOTAL DAILY DOSE: 800 MG  UNIT DOSE: 200 MG
     Route: 048
     Dates: start: 20060912, end: 20061005
  2. NOVALGIN [Concomitant]
     Route: 065
     Dates: start: 20060908
  3. DURAGESIC-100 [Concomitant]
     Route: 061
     Dates: start: 20060801
  4. DURAGESIC-100 [Concomitant]
     Route: 061
     Dates: start: 20060918
  5. MOVICOL [Concomitant]
     Route: 048
     Dates: start: 20060801
  6. BONDRONAT [Concomitant]
     Route: 065
     Dates: start: 20060912
  7. SEVREDOL [Concomitant]
     Route: 065
     Dates: start: 20060908
  8. SEVREDOL [Concomitant]
     Dates: start: 20060918
  9. INTERFERON ALPHA [Concomitant]
     Route: 065
  10. PROLEUKIN [Concomitant]
     Route: 065
  11. XYLONEST [Concomitant]
  12. METOCLOPRAMIDE [Concomitant]
     Dosage: AS USED: 20 GTT
     Route: 048
     Dates: start: 20061005, end: 20061009
  13. OMEP [Concomitant]
     Dates: start: 20060922, end: 20061005

REACTIONS (10)
  - ABDOMINAL PAIN [None]
  - CONSTIPATION [None]
  - DIARRHOEA [None]
  - DRUG TOLERANCE DECREASED [None]
  - DYSPEPSIA [None]
  - GENERAL PHYSICAL HEALTH DETERIORATION [None]
  - MUSCULOSKELETAL PAIN [None]
  - NEURALGIA [None]
  - VERTIGO [None]
  - VOMITING [None]
